FAERS Safety Report 9393326 (Version 4)
Quarter: 2014Q1

REPORT INFORMATION
  Report Type: Spontaneous
  Country: FR (occurrence: FR)
  Receive Date: 20130710
  Receipt Date: 20140117
  Transmission Date: 20141002
  Serious: Yes (Other)
  Sender: FDA-Public Use
  Company Number: FR-GILEAD-2013-0078692

PATIENT
  Age: 64 Year
  Sex: Female

DRUGS (3)
  1. HEPSERA [Suspect]
     Indication: HEPATITIS B
     Dosage: 10MG PER DAY
     Route: 048
     Dates: start: 200506, end: 20111019
  2. VIREAD [Suspect]
     Indication: HEPATITIS B
     Dosage: 245MG PER DAY
     Route: 048
     Dates: start: 20111020, end: 20130521
  3. ZEFFIX [Suspect]
     Indication: HEPATITIS B
     Dosage: UNK
     Route: 048
     Dates: start: 20060610, end: 20111019

REACTIONS (7)
  - Condition aggravated [Recovered/Resolved]
  - Glycosuria [Unknown]
  - Nephropathy [Recovered/Resolved with Sequelae]
  - Renal tubular disorder [Recovered/Resolved]
  - Blood creatine increased [Recovered/Resolved with Sequelae]
  - Blood phosphorus decreased [Recovered/Resolved]
  - Proteinuria [Recovered/Resolved]
